FAERS Safety Report 20900718 (Version 1)
Quarter: 2022Q2

REPORT INFORMATION
  Report Type: Spontaneous
  Country: US (occurrence: US)
  Receive Date: 20220601
  Receipt Date: 20220601
  Transmission Date: 20220721
  Serious: No
  Sender: FDA-Public Use
  Company Number: US-BRISTOL-MYERS SQUIBB COMPANY-2022-033550

PATIENT
  Age: 63 Year
  Sex: Male
  Weight: 84.7 kg

DRUGS (3)
  1. ABECMA [Suspect]
     Active Substance: IDECABTAGENE VICLEUCEL
     Indication: Plasma cell myeloma
     Dosage: DOSE : 442.93X10 TO THE POWER OF 6;     FREQ : ONE DOSE
     Dates: start: 20220328
  2. BENADRYL [Concomitant]
     Active Substance: DIPHENHYDRAMINE HYDROCHLORIDE
     Indication: Product used for unknown indication
  3. SALINE [Concomitant]
     Active Substance: SODIUM CHLORIDE
     Indication: Product used for unknown indication

REACTIONS (1)
  - Hypotension [Unknown]

NARRATIVE: CASE EVENT DATE: 20220328
